FAERS Safety Report 7992212-5 (Version None)
Quarter: 2011Q4

REPORT INFORMATION
  Report Type: 
  Country: None (occurrence: None)
  Receive Date: 20111219
  Receipt Date: 20110126
  Transmission Date: 20120403
  Serious: No
  Sender: FDA-Public Use
  Company Number: US-ASTRAZENECA-2011SE04431

PATIENT
  Age: 62 Year
  Sex: Male
  Weight: 79.4 kg

DRUGS (4)
  1. TOPROL-XL [Concomitant]
     Indication: HYPERTENSION
  2. PRILOSEC [Concomitant]
     Indication: GASTROOESOPHAGEAL REFLUX DISEASE
  3. CRESTOR [Suspect]
     Indication: HYPERCHOLESTEROLAEMIA
     Route: 048
     Dates: start: 20110101
  4. ASPIRIN [Concomitant]

REACTIONS (3)
  - BODY TEMPERATURE DECREASED [None]
  - HEADACHE [None]
  - FATIGUE [None]
